FAERS Safety Report 9020336 (Version 1)
Quarter: 2013Q1

REPORT INFORMATION
  Report Type: Spontaneous
  Country: US (occurrence: US)
  Receive Date: 20130119
  Receipt Date: 20130119
  Transmission Date: 20140127
  Serious: No
  Sender: FDA-Public Use
  Company Number: US-ALLERGAN-1208881US

PATIENT
  Age: 43 Year
  Sex: Female
  Weight: 68.03 kg

DRUGS (6)
  1. BOTOX COSMETIC [Suspect]
     Indication: SKIN WRINKLING
     Dosage: 26 UNITS, SINGLE
     Route: 030
     Dates: start: 20120515, end: 20120515
  2. BOTOX COSMETIC [Suspect]
     Indication: SKIN WRINKLING
     Dosage: 8 UNITS, SINGLE
     Route: 030
     Dates: start: 20120515, end: 20120515
  3. BOTOX COSMETIC [Suspect]
     Indication: SKIN WRINKLING
     Dosage: 10 UNITS, SINGLE
     Route: 030
     Dates: start: 20120515, end: 20120515
  4. BOTOX COSMETIC [Suspect]
     Dosage: 4 UNITS, SINGLE
     Route: 030
     Dates: start: 20120529, end: 20120529
  5. BIRTH CONTROL [Concomitant]
     Indication: CONTRACEPTION
  6. EPHEDRINE [Concomitant]
     Indication: WEIGHT DECREASED

REACTIONS (6)
  - Muscle spasms [Unknown]
  - Skin wrinkling [Unknown]
  - Dyskinesia [Unknown]
  - Therapeutic response decreased [Unknown]
  - Eyelid ptosis [Recovered/Resolved]
  - Eyelid oedema [Recovered/Resolved]
